FAERS Safety Report 6477814-X (Version None)
Quarter: 2009Q4

REPORT INFORMATION
  Report Type: 
  Country: None (occurrence: None)
  Receive Date: 20091207
  Receipt Date: 20091126
  Transmission Date: 20100525
  Serious: Yes (Other)
  Sender: FDA-Public Use
  Company Number: ZA-PFIZER INC-2009302963

PATIENT
  Age: 62 Year
  Sex: Female

DRUGS (5)
  1. CADUET [Suspect]
     Dosage: UNK
     Route: 048
  2. ELTROXIN [Concomitant]
     Route: 048
  3. TREPILINE [Concomitant]
     Route: 048
  4. FEMIGEL [Concomitant]
     Route: 065
  5. METFORMIN HCL [Concomitant]
     Route: 048

REACTIONS (3)
  - BENIGN BREAST NEOPLASM [None]
  - GYNAECOMASTIA [None]
  - MAMMARY DUCT ECTASIA [None]
